FAERS Safety Report 8837361 (Version 1)
Quarter: 2012Q4

REPORT INFORMATION
  Report Type: Spontaneous
  Country: US (occurrence: None)
  Receive Date: 20121011
  Receipt Date: 20121011
  Transmission Date: 20130627
  Serious: Yes (Other)
  Sender: FDA-Public Use
  Company Number: None

PATIENT
  Age: 52 Year
  Sex: Female
  Weight: 68.04 kg

DRUGS (1)
  1. LUPRON [Suspect]
     Indication: FIBROIDS
     Dates: start: 20070102, end: 20090202

REACTIONS (6)
  - Intervertebral disc degeneration [None]
  - Osteopenia [None]
  - Osteoarthritis [None]
  - Bipolar disorder [None]
  - Bone disorder [None]
  - Unevaluable event [None]
